FAERS Safety Report 9881966 (Version 2)
Quarter: 2014Q1

REPORT INFORMATION
  Report Type: Report from Study
  Country: CA (occurrence: CA)
  Receive Date: 20140207
  Receipt Date: 20140207
  Transmission Date: 20141002
  Serious: Yes (Other)
  Sender: FDA-Public Use
  Company Number: CA-BRISTOL-MYERS SQUIBB COMPANY-19703545

PATIENT
  Age: 45 Year
  Sex: Female

DRUGS (17)
  1. ORENCIA [Suspect]
     Indication: RHEUMATOID ARTHRITIS
     Dosage: 1DF= 750 UNITS NOS.?ONGOING.?3J75953- JULY-2016.
     Dates: start: 20091116
  2. LOSEC [Concomitant]
  3. FOLIC ACID [Concomitant]
  4. IRON [Concomitant]
  5. ARTHROTEC [Concomitant]
  6. LEVODOPA + CARBIDOPA [Concomitant]
  7. TOPIRAMATE [Concomitant]
  8. REACTINE [Concomitant]
  9. DEXAMETHASONE [Concomitant]
  10. CIPROFLOXACIN [Concomitant]
  11. METHOTREXATE [Concomitant]
  12. SINEMET [Concomitant]
  13. ASPIRIN [Concomitant]
  14. CLARITIN [Concomitant]
  15. PREVACID [Concomitant]
  16. SYMBICORT [Concomitant]
  17. FERROUS GLUCONATE [Concomitant]

REACTIONS (5)
  - Nasal polyps [Unknown]
  - Sinusitis [Unknown]
  - Dermatitis psoriasiform [Unknown]
  - Infection [Unknown]
  - Swelling [Unknown]
